FAERS Safety Report 9536167 (Version 1)
Quarter: 2013Q2

REPORT INFORMATION
  Report Type: Spontaneous
  Country: US (occurrence: None)
  Receive Date: 20130422
  Receipt Date: 20130422
  Transmission Date: 20140414
  Serious: Yes (Hospitalization, Other)
  Sender: FDA-Public Use
  Company Number: DAV-AE-CLO-12-03

PATIENT
  Age: 71 Year
  Sex: Male

DRUGS (1)
  1. CLONIDINE [Suspect]
     Indication: BACK PAIN
     Dosage: 600 UG/ML, CONTINUED

REACTIONS (4)
  - Accidental overdose [None]
  - Speech disorder [None]
  - Altered state of consciousness [None]
  - Hypertension [None]
